FAERS Safety Report 22248191 (Version 1)
Quarter: 2023Q2

REPORT INFORMATION
  Report Type: Spontaneous
  Country: US (occurrence: US)
  Receive Date: 20230425
  Receipt Date: 20230425
  Transmission Date: 20230722
  Serious: No
  Sender: FDA-Public Use
  Company Number: None

PATIENT
  Age: 26 Year
  Sex: Male

DRUGS (2)
  1. LORAZEPAM [Suspect]
     Active Substance: LORAZEPAM
     Indication: Serotonin syndrome
     Dosage: UNK, WAS ADMINISTERED LORAZEPAM INTERMITTENTLY, AS NEEDED.
     Route: 065
  2. LORAZEPAM [Suspect]
     Active Substance: LORAZEPAM
     Dosage: 1 MILLIGRAM, AT BED TIME OVER THE COURSE OF THE PATIENT^S ADMISSION WITH RESULTANT SYMPTOM RESOLUTIO
     Route: 065

REACTIONS (1)
  - Off label use [Unknown]
